FAERS Safety Report 7195576-8 (Version None)
Quarter: 2010Q4

REPORT INFORMATION
  Report Type: 
  Country: None (occurrence: None)
  Receive Date: 20101223
  Receipt Date: 20101005
  Transmission Date: 20110411
  Serious: No
  Sender: FDA-Public Use
  Company Number: US-AMGEN-KDL443319

PATIENT

DRUGS (22)
  1. ENBREL [Suspect]
     Indication: PRODUCT USED FOR UNKNOWN INDICATION
     Dosage: 50 MG, QWK
     Route: 058
  2. CIPROFLOXACIN HYDROCHLORIDE [Concomitant]
     Dosage: 250 MG, UNK
  3. HYDROXYCHLOROQUINE SULFATE [Concomitant]
     Dosage: 200 MG, UNK
  4. LOMOTIL [Concomitant]
     Dosage: 205 MG, UNK
  5. DIPHENHYDRAMINE HYDROCHLORIDE [Concomitant]
     Dosage: 25 MG, UNK
  6. FUROSEMIDE [Concomitant]
     Dosage: 20 MG, UNK
  7. MOMETASONE FUROATE MONOHYDRATE [Concomitant]
     Dosage: UNK UNK, UNK
  8. TRAZODONE [Concomitant]
     Dosage: 50 MG, UNK
  9. CLONAZEPAM [Concomitant]
     Dosage: .5 MG, UNK
  10. PROCHLORPERAZINE [Concomitant]
     Dosage: 5 MG, UNK
  11. HYDROCODONE BITARTRATE [Concomitant]
  12. DIAZEPAM [Concomitant]
     Dosage: 2 MG, UNK
  13. PROPRANOLOL [Concomitant]
     Dosage: 10 MG, UNK
  14. FLUOXETINE HYDROCHLORIDE [Concomitant]
     Dosage: 10 MG, UNK
  15. LANSOPRAZOLE [Concomitant]
     Dosage: 15 MG, UNK
  16. GLUCOSAMINE W/CHONDROITIN SULFATES [Concomitant]
     Dosage: UNK UNK, UNK
  17. FISH OIL [Concomitant]
     Dosage: UNK UNK, UNK
  18. CALCIUM [Concomitant]
     Dosage: UNK UNK, UNK
  19. PSYLLIUM HYDROPHILIC MUCILLOID [Concomitant]
     Dosage: UNK UNK, UNK
  20. MULTI-VITAMINS [Concomitant]
     Dosage: UNK UNK, UNK
  21. COLECALCIFEROL [Concomitant]
     Dosage: UNK UNK, UNK
  22. LEVOTHYROXINE SODIUM [Concomitant]
     Dosage: 200 A?G, UNK

REACTIONS (2)
  - INJECTION SITE PRURITUS [None]
  - LOCALISED INFECTION [None]
